FAERS Safety Report 9227160 (Version 1)
Quarter: 2013Q1

REPORT INFORMATION
  Report Type: Spontaneous
  Country: US (occurrence: None)
  Receive Date: 20121012
  Receipt Date: 20121012
  Transmission Date: 20140127
  Serious: Yes (Other)
  Sender: FDA-Public Use
  Company Number: 1000029221

PATIENT
  Age: 30 Year
  Sex: Female

DRUGS (1)
  1. LEXAPRO [Suspect]
     Indication: DEPRESSION
     Dosage: 20 MG ( 20 MG, 1 IN 1 D), ORAL
     Route: 048
     Dates: start: 20120315, end: 20120319

REACTIONS (3)
  - Suicidal ideation [None]
  - Depression [None]
  - Fatigue [None]
